FAERS Safety Report 21037208 (Version 1)
Quarter: 2022Q3

REPORT INFORMATION
  Report Type: Spontaneous
  Country: US (occurrence: US)
  Receive Date: 20220703
  Receipt Date: 20220703
  Transmission Date: 20221027
  Serious: No
  Sender: FDA-Public Use
  Company Number: US-BRISTOL-MYERS SQUIBB COMPANY-2022-062607

PATIENT
  Age: 69 Year
  Sex: Female

DRUGS (1)
  1. POMALIDOMIDE [Suspect]
     Active Substance: POMALIDOMIDE
     Indication: Plasma cell myeloma
     Dosage: DAILY FOR21 DAYS ON AND 7 DAYS OFF
     Route: 048
     Dates: start: 20220518

REACTIONS (3)
  - Fatigue [Unknown]
  - Disturbance in attention [Unknown]
  - Constipation [Unknown]
